FAERS Safety Report 7906054-X (Version None)
Quarter: 2011Q4

REPORT INFORMATION
  Report Type: 
  Country: None (occurrence: None)
  Receive Date: 20111110
  Receipt Date: 20111110
  Transmission Date: 20120403
  Serious: Yes (Other)
  Sender: FDA-Public Use
  Company Number: None

PATIENT
  Age: 60 Year
  Sex: Male
  Weight: 111.13 kg

DRUGS (1)
  1. NAVANE [Suspect]
     Indication: DEMENTIA ALZHEIMER'S TYPE
     Dosage: 2MG
     Route: 048
     Dates: start: 20111101, end: 20111104

REACTIONS (3)
  - RESTLESSNESS [None]
  - MIDDLE INSOMNIA [None]
  - FEELING JITTERY [None]
